FAERS Safety Report 7394531-2 (Version None)
Quarter: 2011Q2

REPORT INFORMATION
  Report Type: 
  Country: None (occurrence: None)
  Receive Date: 20110405
  Receipt Date: 20110329
  Transmission Date: 20111010
  Serious: Yes (Life-Threatening, Other)
  Sender: FDA-Public Use
  Company Number: PHHY2011US26147

PATIENT
  Age: 31 Year
  Sex: Female

DRUGS (3)
  1. ZYPREXA [Concomitant]
     Dosage: 40 MG
  2. METFORMIN [Concomitant]
  3. CLOZARIL [Suspect]
     Dosage: 350-400 MG, DAILY

REACTIONS (3)
  - WEIGHT INCREASED [None]
  - DIABETES MELLITUS [None]
  - ATRIOVENTRICULAR BLOCK COMPLETE [None]
